FAERS Safety Report 6499238-1 (Version None)
Quarter: 2009Q4

REPORT INFORMATION
  Report Type: 
  Country: None (occurrence: None)
  Receive Date: 20091215
  Receipt Date: 20091209
  Transmission Date: 20100525
  Serious: Yes (Death, Life-Threatening)
  Sender: FDA-Public Use
  Company Number: DE-ELI_LILLY_AND_COMPANY-DE200912002400

PATIENT
  Age: 63 Year
  Sex: Male

DRUGS (2)
  1. ALIMTA [Suspect]
     Indication: NON-SMALL CELL LUNG CANCER
     Dosage: 500 MG/M2, DAILY (1/D)
     Route: 042
     Dates: start: 20091007, end: 20090101
  2. ALIMTA [Suspect]
     Dosage: 400 MG/M2, DAILY (1/D)
     Route: 042
     Dates: start: 20091103

REACTIONS (3)
  - DIARRHOEA [None]
  - LEUKOPENIA [None]
  - RENAL FAILURE ACUTE [None]
